FAERS Safety Report 8161268-1 (Version None)
Quarter: 2012Q1

REPORT INFORMATION
  Report Type: 
  Country: None (occurrence: None)
  Receive Date: 20120222
  Receipt Date: 20120222
  Transmission Date: 20120608
  Serious: No
  Sender: FDA-Public Use
  Company Number: None

PATIENT
  Sex: Female
  Weight: 75.8 kg

DRUGS (3)
  1. IFOSFAMIDE [Suspect]
     Dosage: 10.68 G
  2. NEULASTA [Suspect]
     Dosage: 6 MG
  3. TAXOL [Suspect]
     Dosage: 312 MG

REACTIONS (1)
  - BLOOD PHOSPHORUS DECREASED [None]
